FAERS Safety Report 16686517 (Version 1)
Quarter: 2019Q3

REPORT INFORMATION
  Report Type: Spontaneous
  Country: US (occurrence: US)
  Receive Date: 20190624
  Receipt Date: 20190624
  Transmission Date: 20191004
  Serious: Yes (Death, Life-Threatening, Hospitalization, Disabling, Congenital Anomaly, Other)
  Sender: FDA-Public Use
  Company Number: None

PATIENT
  Sex: Female
  Weight: 57.15 kg

DRUGS (7)
  1. CALAHIST (CALAMINE) [Concomitant]
  2. VITAMIN D [Concomitant]
     Active Substance: VITAMIN D NOS
  3. EAR WAX REMOVAL KIT [Concomitant]
  4. CENTRUM CHEWABLE [Concomitant]
  5. HALDOL [Concomitant]
     Active Substance: HALOPERIDOL
  6. VITAMIN K [Concomitant]
     Active Substance: PHYTONADIONE
  7. RISPERDAL [Suspect]
     Active Substance: RISPERIDONE
     Indication: PRODUCT USED FOR UNKNOWN INDICATION
     Dosage: ?          QUANTITY:90 DF DOSAGE FORM;?
     Route: 048

REACTIONS (6)
  - Feeding disorder [None]
  - Paralysis [None]
  - Motor dysfunction [None]
  - Blindness transient [None]
  - Product label issue [None]
  - Aphasia [None]
